FAERS Safety Report 14806337 (Version 4)
Quarter: 2018Q2

REPORT INFORMATION
  Report Type: Report from Study
  Country: JP (occurrence: JP)
  Receive Date: 20180425
  Receipt Date: 20180521
  Transmission Date: 20180711
  Serious: Yes (Hospitalization, Other)
  Sender: FDA-Public Use
  Company Number: JP-OTSUKA-2018_008447

PATIENT
  Age: 75 Year
  Sex: Male
  Weight: 64.4 kg

DRUGS (6)
  1. ASPIRIN. [Suspect]
     Active Substance: ASPIRIN
     Dosage: 200 MG, DAILY DOSE
     Route: 048
     Dates: start: 20180309
  2. ASPIRIN. [Suspect]
     Active Substance: ASPIRIN
     Dosage: 100 MG, DAILY DOSE
     Route: 048
     Dates: start: 20180316
  3. STATIN [Concomitant]
     Active Substance: UNSPECIFIED INGREDIENT
     Indication: DYSLIPIDAEMIA
     Dosage: UNK
     Route: 065
  4. ASPIRIN. [Suspect]
     Active Substance: ASPIRIN
     Indication: ISCHAEMIC STROKE
     Dosage: 100 MG, QD
     Route: 048
     Dates: start: 20161213, end: 20180302
  5. CILOSTAZOL. [Suspect]
     Active Substance: CILOSTAZOL
     Indication: ISCHAEMIC STROKE
     Dosage: 200 MG, DAILY DOSE (DIVIDED INTO 2 DOSES)
     Route: 048
     Dates: start: 20161213, end: 20180302
  6. CILOSTAZOL. [Suspect]
     Active Substance: CILOSTAZOL
     Dosage: 200 MG, DAILY DOSE
     Route: 048
     Dates: start: 20180306

REACTIONS (4)
  - Haematochezia [Recovered/Resolved]
  - Thrombotic cerebral infarction [Recovered/Resolved]
  - Intestinal obstruction [Recovered/Resolved]
  - Colitis ischaemic [Recovered/Resolved]

NARRATIVE: CASE EVENT DATE: 20180302
